FAERS Safety Report 25627295 (Version 1)
Quarter: 2025Q3

REPORT INFORMATION
  Report Type: Spontaneous
  Country: US (occurrence: US)
  Receive Date: 20250731
  Receipt Date: 20250731
  Transmission Date: 20251020
  Serious: No
  Sender: PFIZER
  Company Number: US-PFIZER INC-PV202500091913

PATIENT
  Age: 55 Year
  Sex: Female

DRUGS (1)
  1. TUKYSA [Suspect]
     Active Substance: TUCATINIB
     Dosage: 2 TABLETS EVERY MORNING AND 2 TABLETS AT BEDTIME

REACTIONS (1)
  - Diarrhoea [Unknown]
